FAERS Safety Report 12523280 (Version 2)
Quarter: 2016Q4

REPORT INFORMATION
  Report Type: Spontaneous
  Country: AR (occurrence: AR)
  Receive Date: 20160702
  Receipt Date: 20161003
  Transmission Date: 20170207
  Serious: Yes (Hospitalization, Other)
  Sender: FDA-Public Use
  Company Number: AR-AMGEN-ARGSP2016085107

PATIENT
  Age: 31 Year
  Sex: Female

DRUGS (1)
  1. ENBREL [Suspect]
     Active Substance: ETANERCEPT
     Indication: RHEUMATOID ARTHRITIS
     Dosage: 50 MG, WEEKLY
     Route: 065
     Dates: start: 20100127

REACTIONS (4)
  - Fall [Recovering/Resolving]
  - Lower limb fracture [Recovering/Resolving]
  - Impaired healing [Recovering/Resolving]
  - Skin sensitisation [Recovering/Resolving]

NARRATIVE: CASE EVENT DATE: 20160317
